FAERS Safety Report 9668638 (Version 2)
Quarter: 2013Q4

REPORT INFORMATION
  Report Type: Spontaneous
  Country: GB (occurrence: GB)
  Receive Date: 20131105
  Receipt Date: 20131105
  Transmission Date: 20140711
  Serious: Yes (Other)
  Sender: FDA-Public Use
  Company Number: GB-DRREDDYS-GER/UKI/13/0030481

PATIENT
  Age: 90 Year
  Sex: Female

DRUGS (5)
  1. CO-AMOXICLAV [Suspect]
     Indication: NOSOCOMIAL INFECTION
     Route: 041
     Dates: start: 20110504, end: 20110504
  2. OMEPRAZOLE [Concomitant]
     Indication: PRODUCT USED FOR UNKNOWN INDICATION
  3. CIPROFLOXACIN [Suspect]
     Indication: NOSOCOMIAL INFECTION
     Route: 048
     Dates: start: 20110505, end: 20110508
  4. CIPROFLOXACIN [Suspect]
     Route: 048
     Dates: start: 20110512, end: 20110513
  5. CIPROFLOXACIN [Suspect]
     Indication: NOSOCOMIAL INFECTION
     Route: 041
     Dates: start: 20110509, end: 20110511

REACTIONS (6)
  - Abdominal distension [Recovering/Resolving]
  - Pyrexia [Recovering/Resolving]
  - Malaise [Recovering/Resolving]
  - Vomiting [Recovering/Resolving]
  - Gastroenteritis norovirus [Unknown]
  - Clostridium difficile colitis [Recovering/Resolving]
